FAERS Safety Report 7103889-0 (Version None)
Quarter: 2010Q4

REPORT INFORMATION
  Report Type: 
  Country: None (occurrence: None)
  Receive Date: 20101115
  Receipt Date: 20101105
  Transmission Date: 20110411
  Serious: Yes (Hospitalization)
  Sender: FDA-Public Use
  Company Number: PHHY2010CA38469

PATIENT
  Sex: Female

DRUGS (7)
  1. EXJADE [Suspect]
     Indication: MYELODYSPLASTIC SYNDROME
     Dosage: 2000 MG
     Route: 048
     Dates: start: 20100601
  2. DOMPERIDONE [Concomitant]
     Dosage: TWICE DAILY
  3. RABEPRAZOLE SODIUM [Concomitant]
     Dosage: ONCE DAILY
  4. NORFLAXIN [Concomitant]
     Indication: INFECTION
     Dosage: UNK
     Dates: start: 19900101
  5. ELPRAXIN [Concomitant]
  6. LIPITOR [Concomitant]
  7. MULTIPLE VITAMINS [Concomitant]

REACTIONS (3)
  - ACUTE LEUKAEMIA [None]
  - HEADACHE [None]
  - PYREXIA [None]
